APPROVED DRUG PRODUCT: BROMFENAC SODIUM
Active Ingredient: BROMFENAC SODIUM
Strength: EQ 0.09% ACID
Dosage Form/Route: SOLUTION/DROPS;OPHTHALMIC
Application: A210560 | Product #001 | TE Code: AT2
Applicant: ALEMBIC PHARMACEUTICALS LTD
Approved: Jun 21, 2019 | RLD: No | RS: Yes | Type: RX